FAERS Safety Report 7992210-1 (Version None)
Quarter: 2011Q4

REPORT INFORMATION
  Report Type: 
  Country: None (occurrence: None)
  Receive Date: 20111219
  Receipt Date: 20110707
  Transmission Date: 20120403
  Serious: No
  Sender: FDA-Public Use
  Company Number: US-ASTRAZENECA-2011SE40767

PATIENT
  Age: 56 Year
  Sex: Female

DRUGS (33)
  1. CRESTOR [Suspect]
     Route: 048
  2. LISINOPRIL [Concomitant]
     Route: 048
  3. SEROQUEL [Concomitant]
     Dosage: ONE AND HALF TABLET , AT BEDTIME
     Route: 048
  4. SIMVASTATIN [Concomitant]
     Route: 048
  5. CAFERGOT [Concomitant]
  6. ASPIRIN [Concomitant]
     Route: 048
  7. DOCUSATE SODIUM [Concomitant]
     Route: 048
  8. FLEXERIL [Concomitant]
     Route: 048
  9. IRON [Concomitant]
     Route: 048
  10. NORTRIPTYLINE HCL [Concomitant]
     Route: 048
  11. BD INSULINE SYR ULTRA FINE II [Concomitant]
     Dosage: 31 GX5/16 1 ML MISC, AT BEDTIME FOR 30 DAYS
  12. CELEBREX [Concomitant]
  13. LIPITOR [Concomitant]
  14. VIOXX [Concomitant]
  15. LANTUS [Concomitant]
     Dosage: 100 UNIT/ML SOLUTION, 65 UNITS DAILY
     Route: 058
  16. LANTUS [Concomitant]
     Dosage: 100 UNIT/ML SOLUTION, 67 UNITS AT NIGHT
     Route: 058
  17. HUMALOG PEN [Concomitant]
     Dosage: 100 UNIT/ML SOLUTION,THREE TIMES IN A DAY
     Route: 058
  18. PAXIL [Concomitant]
     Route: 048
  19. CYMBALTA [Concomitant]
  20. NIASPAN [Concomitant]
  21. VITAMIN D [Concomitant]
     Route: 048
  22. LEVSIN/SL [Concomitant]
     Route: 048
  23. VENTOLIN HFA [Concomitant]
     Dosage: 108(90 BASE)MCG/ACT, 2 INHALATION, EVERY 4 HOURS AS NEEDED
     Route: 055
  24. METOPROLOL TARTRATE [Concomitant]
     Route: 048
  25. OMEPRAZOLE [Concomitant]
     Route: 048
  26. VICODIN [Concomitant]
  27. MYCOSTATIN [Concomitant]
     Dosage: 100000 UNIT/GM, TWO TIMES IN A DAY
     Route: 061
  28. METFORMIN HCL [Concomitant]
     Route: 048
  29. RANITIDINE [Concomitant]
     Route: 048
  30. FISH OIL CONCENTRATE [Concomitant]
     Route: 048
  31. ULTRAM [Concomitant]
     Route: 048
  32. VITAMIN B COMPLEX CAP [Concomitant]
     Dosage: DAILY
     Route: 048
  33. HYDROCHLOROTHIAZIDE [Concomitant]
     Route: 048

REACTIONS (2)
  - SWELLING [None]
  - DRUG HYPERSENSITIVITY [None]
